FAERS Safety Report 13084371 (Version 1)
Quarter: 2017Q1

REPORT INFORMATION
  Report Type: Spontaneous
  Country: DK (occurrence: None)
  Receive Date: 20170104
  Receipt Date: 20170104
  Transmission Date: 20170428
  Serious: Yes (Hospitalization)
  Sender: FDA-Public Use
  Company Number: DK2016K8825SPO

PATIENT
  Age: 66 Year
  Sex: Male

DRUGS (5)
  1. CARDURAN RETARD (DOXAZOSINMESILAT) [Concomitant]
  2. FURIX (FUROSEMID) [Concomitant]
  3. KALEORID (KALIUMCHLORID) [Suspect]
     Active Substance: POTASSIUM CHLORIDE
     Indication: MINERAL SUPPLEMENTATION
     Route: 048
     Dates: end: 20160608
  4. SPIRON (SPIRONOLACTON) [Suspect]
     Active Substance: SPIRONOLACTONE
     Indication: HYPERTENSION
     Route: 048
     Dates: start: 20150123
  5. ENALAPRIL KRKA (ENALAPRIL) TABLET [Suspect]
     Active Substance: ENALAPRIL
     Indication: HYPERTENSION
     Route: 048

REACTIONS (5)
  - Acute kidney injury [None]
  - Toxicity to various agents [None]
  - Hyperkalaemia [None]
  - Dry skin [None]
  - Nocturia [None]

NARRATIVE: CASE EVENT DATE: 20160522
